FAERS Safety Report 22189617 (Version 1)
Quarter: 2023Q2

REPORT INFORMATION
  Report Type: Report from Study
  Country: BR (occurrence: BR)
  Receive Date: 20230410
  Receipt Date: 20230410
  Transmission Date: 20230721
  Serious: Yes (Other)
  Sender: FDA-Public Use
  Company Number: BR-CELLTRION INC.-2023BR006836

PATIENT

DRUGS (6)
  1. TRUXIMA [Suspect]
     Active Substance: RITUXIMAB-ABBS
     Indication: Systemic scleroderma
     Dosage: 2 AMPOLUES EVERY 6 MONTHS
     Route: 042
  2. PREDNISONE [Concomitant]
     Active Substance: PREDNISONE
     Indication: Systemic lupus erythematosus
     Dosage: 5 MG, 1 PILL PER DAY
     Route: 048
     Dates: start: 201911
  3. CHLOROQUINE PHOSPHATE [Concomitant]
     Active Substance: CHLOROQUINE PHOSPHATE
     Indication: Systemic lupus erythematosus
     Dosage: 400 MG, 1 PILL PER DAY
     Route: 048
     Dates: start: 201911
  4. MYCOPHENOLIC ACID [Concomitant]
     Active Substance: MYCOPHENOLIC ACID
     Indication: Systemic scleroderma
     Dosage: 500 MG, 2 PILLS PER DAY
     Route: 048
     Dates: start: 202011
  5. MYCOPHENOLIC ACID [Concomitant]
     Active Substance: MYCOPHENOLIC ACID
     Indication: Systemic lupus erythematosus
  6. METHOTREXATE SODIUM [Concomitant]
     Active Substance: METHOTREXATE SODIUM
     Indication: Pain
     Dosage: 2.5 MG, 6 PILLS PER WEEK
     Route: 048
     Dates: start: 2022

REACTIONS (4)
  - Systemic scleroderma [Unknown]
  - Treatment delayed [Unknown]
  - Product distribution issue [Unknown]
  - Off label use [Unknown]
